FAERS Safety Report 7981652-6 (Version None)
Quarter: 2011Q4

REPORT INFORMATION
  Report Type: 
  Country: None (occurrence: None)
  Receive Date: 20111215
  Receipt Date: 20111209
  Transmission Date: 20120403
  Serious: Yes (Hospitalization, Other)
  Sender: FDA-Public Use
  Company Number: US-BRISTOL-MYERS SQUIBB COMPANY-16264558

PATIENT
  Age: 70 Year
  Sex: Female
  Weight: 49 kg

DRUGS (3)
  1. FLUOROURACIL [Suspect]
     Indication: ANAL CANCER
     Dosage: LAST ADMIN DOSE ON 22NOV-26NOV2011.
     Dates: start: 20111018
  2. CISPLATIN [Suspect]
     Indication: ANAL CANCER
     Dosage: LAST ADMIN DOSE ON 22NOV2011.
     Dates: start: 20111018
  3. ERBITUX [Suspect]
     Indication: ANAL CANCER
     Dosage: LAST ADMIN DOSE ON 22NOV2011.
     Dates: start: 20111018

REACTIONS (15)
  - HYPOMAGNESAEMIA [None]
  - DIARRHOEA [None]
  - LUNG INFECTION [None]
  - HYPONATRAEMIA [None]
  - HYPOCALCAEMIA [None]
  - HYPOKALAEMIA [None]
  - LOCALISED OEDEMA [None]
  - HYPOPHOSPHATAEMIA [None]
  - NAUSEA [None]
  - HYPOALBUMINAEMIA [None]
  - WHITE BLOOD CELL COUNT DECREASED [None]
  - DECREASED APPETITE [None]
  - DEHYDRATION [None]
  - FATIGUE [None]
  - ANAEMIA [None]
